FAERS Safety Report 7631989-5 (Version None)
Quarter: 2011Q3

REPORT INFORMATION
  Report Type: 
  Country: None (occurrence: None)
  Receive Date: 20110725
  Receipt Date: 20110518
  Transmission Date: 20111222
  Serious: No
  Sender: FDA-Public Use
  Company Number: US-BRISTOL-MYERS SQUIBB COMPANY-15760812

PATIENT
  Age: 74 Year
  Sex: Male

DRUGS (3)
  1. APIDRA [Suspect]
     Dosage: VIA OPTICLICK 1 DF = 100 IU/ML 12-18 UNITS 3 TIMES/DAY
     Route: 058
  2. WARFARIN SODIUM [Suspect]
  3. LANTUS [Concomitant]

REACTIONS (4)
  - INJECTION SITE INJURY [None]
  - BLOOD GLUCOSE INCREASED [None]
  - INJECTION SITE PAIN [None]
  - INJECTION SITE HAEMORRHAGE [None]
